FAERS Safety Report 8132320-1 (Version None)
Quarter: 2012Q1

REPORT INFORMATION
  Report Type: 
  Country: None (occurrence: None)
  Receive Date: 20120213
  Receipt Date: 20120208
  Transmission Date: 20120608
  Serious: Yes (Death)
  Sender: FDA-Public Use
  Company Number: CN-PFIZER INC-2011082864

PATIENT
  Age: 47 Year
  Sex: Male
  Weight: 49 kg

DRUGS (3)
  1. CELECOXIB [Concomitant]
     Indication: PAIN IN EXTREMITY
     Dosage: 0.4 G, 2X/DAY
     Route: 048
     Dates: start: 20100210
  2. AXITINIB [Suspect]
     Indication: METASTATIC RENAL CELL CARCINOMA
     Dosage: 7 MG, 2X/DAY
     Route: 048
     Dates: start: 20091228, end: 20100730
  3. CODEINE/IBUPROFEN [Concomitant]
     Indication: PAIN IN EXTREMITY
     Dosage: 0.4 G, 2X/DAY
     Route: 048
     Dates: start: 20100210

REACTIONS (1)
  - DEATH [None]
